FAERS Safety Report 5755678-7 (Version None)
Quarter: 2008Q2

REPORT INFORMATION
  Report Type: 
  Country: None (occurrence: None)
  Receive Date: 20080602
  Receipt Date: 20080529
  Transmission Date: 20081010
  Serious: Yes (Life-Threatening)
  Sender: FDA-Public Use
  Company Number: FR-ASTRAZENECA-2008CG00829

PATIENT
  Age: 14795 Day
  Sex: Female

DRUGS (5)
  1. XYLOCAINE [Suspect]
     Indication: CAESAREAN SECTION
     Route: 058
     Dates: start: 20070910, end: 20070910
  2. NAROPEINE [Suspect]
     Indication: CAESAREAN SECTION
     Route: 008
     Dates: start: 20070910, end: 20070910
  3. SUFENTA PRESERVATIVE FREE [Suspect]
     Indication: CAESAREAN SECTION
     Route: 008
     Dates: start: 20070910, end: 20070910
  4. SYNTOCINON [Suspect]
     Indication: CAESAREAN SECTION
     Route: 042
     Dates: start: 20070910, end: 20070910
  5. BETADINE [Suspect]
     Indication: CAESAREAN SECTION
     Route: 061
     Dates: start: 20070910, end: 20070910

REACTIONS (1)
  - ANGIOEDEMA [None]
